FAERS Safety Report 18568826 (Version 1)
Quarter: 2020Q4

REPORT INFORMATION
  Report Type: Not Available
  Country: IN (occurrence: IN)
  Receive Date: 20201202
  Receipt Date: 20201202
  Transmission Date: 20210114
  Serious: Yes (Hospitalization, Other)
  Sender: FDA-Public Use
  Company Number: IN-AKORN-156852

PATIENT
  Age: 63 Year
  Sex: Male

DRUGS (1)
  1. LIDOCAINE HYDROCHLORIDE JELLY [Suspect]
     Active Substance: LIDOCAINE HYDROCHLORIDE

REACTIONS (1)
  - Optic atrophy [Not Recovered/Not Resolved]
